FAERS Safety Report 24272742 (Version 1)
Quarter: 2024Q3

REPORT INFORMATION
  Report Type: Spontaneous
  Country: ZA (occurrence: ZA)
  Receive Date: 20240902
  Receipt Date: 20240902
  Transmission Date: 20241016
  Serious: Yes (Congenital Anomaly, Other)
  Sender: STRIDES
  Company Number: ZA-STRIDES ARCOLAB LIMITED-2024SP010882

PATIENT

DRUGS (6)
  1. TENOFOVIR DISOPROXIL FUMARATE [Suspect]
     Active Substance: TENOFOVIR DISOPROXIL FUMARATE
     Indication: Product used for unknown indication
     Dosage: UNK (PATIENT^S MOTHER RECEIVED 927MG/DAY FOR HIV PRE-EXPOSURE PROPHYLAXIS)
     Route: 064
     Dates: start: 20220727, end: 20230726
  2. TENOFOVIR DISOPROXIL FUMARATE [Suspect]
     Active Substance: TENOFOVIR DISOPROXIL FUMARATE
     Dosage: UNK (PATIENT^S MOTHER RECEIVED 600 MG/DAY FOR HIV PRE-EXPOSURE PROPHYLAXIS)
     Route: 064
     Dates: start: 20220728
  3. TENOFOVIR ALAFENAMIDE [Suspect]
     Active Substance: TENOFOVIR ALAFENAMIDE
     Indication: Product used for unknown indication
     Dosage: UNK (PATIENT^S MOTHER RECEIVED 927MG/DAY FOR HIV PRE-EXPOSURE PROPHYLAXIS)
     Route: 064
     Dates: start: 20220727, end: 20230726
  4. TENOFOVIR ALAFENAMIDE [Suspect]
     Active Substance: TENOFOVIR ALAFENAMIDE
     Dosage: UNK (PATIENT^S MOTHER RECEIVED 600 MG/DAY FOR HIV PRE-EXPOSURE PROPHYLAXIS)
     Route: 064
     Dates: start: 20220728
  5. LENACAPAVIR [Suspect]
     Active Substance: LENACAPAVIR
     Indication: Product used for unknown indication
     Dosage: UNK (PATIENT^S MOTHER RECEIVED 927MG/DAY FOR HIV PRE-EXPOSURE PROPHYLAXIS)
     Route: 064
     Dates: start: 20220727, end: 20230726
  6. LENACAPAVIR [Suspect]
     Active Substance: LENACAPAVIR
     Dosage: UNK (PATIENT^S MOTHER RECEIVED 600 MG/DAY FOR HIV PRE-EXPOSURE PROPHYLAXIS)
     Route: 064
     Dates: start: 20220728

REACTIONS (2)
  - Hydrocele [Unknown]
  - Foetal exposure during pregnancy [Unknown]
